FAERS Safety Report 6837297-4 (Version None)
Quarter: 2010Q3

REPORT INFORMATION
  Report Type: 
  Country: None (occurrence: None)
  Receive Date: 20100708
  Receipt Date: 20100628
  Transmission Date: 20110219
  Serious: Yes (Hospitalization)
  Sender: FDA-Public Use
  Company Number: 2010SP022905

PATIENT
  Age: 61 Year
  Sex: Female
  Weight: 42.2 kg

DRUGS (12)
  1. REMERON [Suspect]
     Indication: DEPRESSION
     Dosage: 15 MG; QD; PO, 30 MG; QD; PO
     Route: 048
     Dates: start: 20100216, end: 20100304
  2. REMERON [Suspect]
     Indication: DEPRESSION
     Dosage: 15 MG; QD; PO, 30 MG; QD; PO
     Route: 048
     Dates: start: 20100305, end: 20100329
  3. REMERON [Suspect]
     Indication: DEPRESSION
     Dosage: 15 MG; QD; PO, 30 MG; QD; PO
     Route: 048
     Dates: start: 20100330, end: 20100413
  4. REMERON [Suspect]
     Indication: DEPRESSION
     Dosage: 15 MG; QD; PO, 30 MG; QD; PO
     Route: 048
     Dates: start: 20100414, end: 20100415
  5. ZYPREXA [Suspect]
     Indication: AFFECT LABILITY
     Dosage: 5 MG; ; PO
     Route: 048
     Dates: start: 20090416
  6. VALERIN [Concomitant]
  7. GASMOTIN [Concomitant]
  8. TETRAMIDE [Concomitant]
  9. FLUNITRAZEPAM [Concomitant]
  10. LENDORMIN [Concomitant]
  11. PURSENNID [Concomitant]
  12. YOUPIS [Concomitant]

REACTIONS (4)
  - AFFECT LABILITY [None]
  - BURNING SENSATION [None]
  - NASOPHARYNGITIS [None]
  - SEROTONIN SYNDROME [None]
